FAERS Safety Report 11339697 (Version 7)
Quarter: 2018Q3

REPORT INFORMATION
  Report Type: Report from Study
  Country: US (occurrence: US)
  Receive Date: 20150805
  Receipt Date: 20180720
  Transmission Date: 20181010
  Serious: Yes (Other)
  Sender: FDA-Public Use
  Company Number: US-AMGEN-USASL2015077545

PATIENT
  Age: 53 Year
  Sex: Female

DRUGS (5)
  1. XELJANZ XR [Concomitant]
     Active Substance: TOFACITINIB CITRATE
     Dosage: 11 MG, QD
     Route: 048
  2. ENBREL [Suspect]
     Active Substance: ETANERCEPT
     Indication: RHEUMATOID ARTHRITIS
     Dosage: 50 MG, QWK
     Route: 065
     Dates: start: 20150428
  3. NYSTATIN. [Concomitant]
     Active Substance: NYSTATIN
     Dosage: 10000 IU/G, UNK
  4. ALEVE [Concomitant]
     Active Substance: NAPROXEN SODIUM
     Indication: RHEUMATOID ARTHRITIS
     Dosage: UNK
  5. SULFASALAZINE. [Concomitant]
     Active Substance: SULFASALAZINE
     Indication: RHEUMATOID ARTHRITIS
     Dosage: UNK
     Route: 065

REACTIONS (13)
  - Rheumatoid arthritis [Unknown]
  - Mass [Unknown]
  - Drug effect incomplete [Unknown]
  - Lower limb fracture [Unknown]
  - Ocular discomfort [Unknown]
  - Pollakiuria [Unknown]
  - Blood pressure increased [Recovering/Resolving]
  - Injection site bruising [Recovered/Resolved]
  - Weight increased [Unknown]
  - Asthenopia [Recovered/Resolved]
  - Fungal infection [Recovered/Resolved]
  - Muscle strain [Unknown]
  - Bronchitis [Unknown]

NARRATIVE: CASE EVENT DATE: 2015
